FAERS Safety Report 5812719-6 (Version None)
Quarter: 2008Q3

REPORT INFORMATION
  Report Type: 
  Country: None (occurrence: None)
  Receive Date: 20080711
  Receipt Date: 20080703
  Transmission Date: 20090109
  Serious: Yes (Death)
  Sender: FDA-Public Use
  Company Number: 163-21880-08070154

PATIENT
  Age: 77 Year
  Sex: Female
  Weight: 69.3 kg

DRUGS (1)
  1. REVLIMID [Suspect]
     Indication: ACUTE MYELOID LEUKAEMIA
     Dosage: 50 MG, QD FOR MAX OF 28 DAYS, ORAL
     Route: 048
     Dates: start: 20080103, end: 20080122

REACTIONS (4)
  - ANAEMIA [None]
  - ASTHENIA [None]
  - DISEASE PROGRESSION [None]
  - FEBRILE NEUTROPENIA [None]
